FAERS Safety Report 25604528 (Version 1)
Quarter: 2025Q3

REPORT INFORMATION
  Report Type: Spontaneous
  Country: KR (occurrence: KR)
  Receive Date: 20250725
  Receipt Date: 20250725
  Transmission Date: 20251020
  Serious: Yes (Death, Life-Threatening, Hospitalization)
  Sender: BEIGENE
  Company Number: KR-CELLTRION INC.-2024KR031330

PATIENT

DRUGS (25)
  1. BRUKINSA [Suspect]
     Active Substance: ZANUBRUTINIB
     Indication: Mantle cell lymphoma
  2. NEULASTA [Suspect]
     Active Substance: PEGFILGRASTIM
     Indication: Product used for unknown indication
  3. TRUXIMA [Suspect]
     Active Substance: RITUXIMAB-ABBS
     Indication: Product used for unknown indication
  4. BENDAMUSTINE HYDROCHLORIDE MONOHYDRATE [Suspect]
     Active Substance: BENDAMUSTINE HYDROCHLORIDE MONOHYDRATE
     Indication: Product used for unknown indication
  5. CYTARABINE [Suspect]
     Active Substance: CYTARABINE
     Indication: Product used for unknown indication
  6. FUROSEMIDE [Concomitant]
     Active Substance: FUROSEMIDE
  7. DILTIAZEM HYDROCHLORIDE [Concomitant]
     Active Substance: DILTIAZEM HYDROCHLORIDE
  8. XYZAL [Concomitant]
     Active Substance: LEVOCETIRIZINE DIHYDROCHLORIDE
  9. HYDROCORTISONE SODIUM SUCCINATE [Concomitant]
     Active Substance: HYDROCORTISONE SODIUM SUCCINATE
  10. DEXAMETHASONE [Concomitant]
     Active Substance: DEXAMETHASONE
  11. ETOMIDATE [Concomitant]
     Active Substance: ETOMIDATE
  12. DIFLUCAN [Concomitant]
     Active Substance: FLUCONAZOLE
  13. EPINEPHRINE [Concomitant]
     Active Substance: EPINEPHRINE
  14. REBAMIPIDE [Concomitant]
     Active Substance: REBAMIPIDE
  15. CELECOXIB [Concomitant]
     Active Substance: CELECOXIB
  16. HYALURONATE SODIUM [Concomitant]
     Active Substance: HYALURONATE SODIUM
  17. LENOGRASTIM [Concomitant]
     Active Substance: LENOGRASTIM
  18. MEROPENEM [Concomitant]
     Active Substance: MEROPENEM
  19. MUCOMYST [Concomitant]
     Active Substance: ACETYLCYSTEINE
  20. LEVOFLOXACIN [Concomitant]
     Active Substance: LEVOFLOXACIN
  21. HEPARIN [Concomitant]
     Active Substance: HEPARIN SODIUM
  22. JANUVIA [Concomitant]
     Active Substance: SITAGLIPTIN PHOSPHATE
  23. LASIX [Concomitant]
     Active Substance: FUROSEMIDE
  24. CEFTRIAXONE [Concomitant]
     Active Substance: CEFTRIAXONE
  25. GASTER [Concomitant]
     Active Substance: FAMOTIDINE

REACTIONS (6)
  - Disease progression [Fatal]
  - Lymphoma [Fatal]
  - Pyrexia [Unknown]
  - Dermatitis exfoliative [Unknown]
  - Chills [Unknown]
  - Intentional product use issue [Unknown]
